FAERS Safety Report 5051487-5 (Version None)
Quarter: 2006Q3

REPORT INFORMATION
  Report Type: 
  Country: None (occurrence: None)
  Receive Date: 20060711
  Receipt Date: 20060630
  Transmission Date: 20061208
  Serious: Yes (Other)
  Sender: FDA-Public Use
  Company Number: S06-USA-02488-01

PATIENT
  Age: 69 Year
  Sex: Female

DRUGS (4)
  1. THYROID TAB [Suspect]
     Indication: HYPOTHYROIDISM
     Dosage: 75 MG QD; PO
     Route: 048
     Dates: start: 20010101
  2. LIPITOR [Concomitant]
  3. BENAZEPRIL HYDROCHLORIDE [Concomitant]
  4. DYAZIDE (TRIAMTERENE/HYDROCHLOROTHIAZIDE) [Concomitant]

REACTIONS (4)
  - DIABETES MELLITUS NON-INSULIN-DEPENDENT [None]
  - EXTRASYSTOLES [None]
  - HEART RATE INCREASED [None]
  - PHARMACEUTICAL PRODUCT COMPLAINT [None]
